FAERS Safety Report 4930404-X (Version None)
Quarter: 2006Q1

REPORT INFORMATION
  Report Type: 
  Country: None (occurrence: None)
  Receive Date: 20060227
  Receipt Date: 20060214
  Transmission Date: 20060701
  Serious: Yes (Hospitalization)
  Sender: FDA-Public Use
  Company Number: 2005BI011018

PATIENT
  Age: 55 Year
  Sex: Female

DRUGS (3)
  1. AVONEX [Suspect]
     Indication: MULTIPLE SCLEROSIS
     Dosage: 30 UG; QW; IM
     Route: 030
     Dates: start: 20031229
  2. AVONEX [Suspect]
  3. AVONEX [Suspect]

REACTIONS (5)
  - BONE DISORDER [None]
  - DYSPNOEA [None]
  - FALL [None]
  - LUNG INJURY [None]
  - RIB FRACTURE [None]
